FAERS Safety Report 9086187 (Version 1)
Quarter: 2013Q1

REPORT INFORMATION
  Report Type: Report from Study
  Country: US (occurrence: US)
  Receive Date: 20130131
  Receipt Date: 20130131
  Transmission Date: 20140127
  Serious: No
  Sender: FDA-Public Use
  Company Number: US-ABBOTT-12P-163-0995181-00

PATIENT
  Age: 62 Year
  Sex: Male

DRUGS (3)
  1. HUMIRA [Suspect]
     Indication: CROHN^S DISEASE
     Dosage: 4 PENS, AT WEEK 0
     Dates: start: 201209
  2. HUMIRA [Suspect]
     Dosage: AT WEEK 2 (DAY 15)
  3. HUMIRA [Suspect]
     Dosage: STARTING IN WEEK 4 (DAY 29)

REACTIONS (1)
  - Injection site pain [Unknown]
